FAERS Safety Report 17361331 (Version 1)
Quarter: 2020Q1

REPORT INFORMATION
  Report Type: Spontaneous
  Country: US (occurrence: US)
  Receive Date: 20200117
  Receipt Date: 20200117
  Transmission Date: 20200409
  Serious: Yes (Other)
  Sender: FDA-Public Use
  Company Number: None

PATIENT
  Age: 85 Year
  Sex: Female
  Weight: 60.33 kg

DRUGS (4)
  1. OTC ALLERGY MEDS [Concomitant]
  2. MULTIVITAMIN [Concomitant]
     Active Substance: VITAMINS
  3. EYLEA [Suspect]
     Active Substance: AFLIBERCEPT
  4. LEVOTHYROXINE. [Concomitant]
     Active Substance: LEVOTHYROXINE

REACTIONS (2)
  - Blindness unilateral [None]
  - Cerebrovascular accident [None]

NARRATIVE: CASE EVENT DATE: 20190315
